FAERS Safety Report 6769852-4 (Version None)
Quarter: 2010Q2

REPORT INFORMATION
  Report Type: 
  Country: None (occurrence: None)
  Receive Date: 20100520
  Receipt Date: 20091109
  Transmission Date: 20101027
  Serious: Yes (Death, Disabling, Other)
  Sender: FDA-Public Use
  Company Number: 2009296050

PATIENT
  Age: 54 Year
  Sex: Female
  Weight: 111 kg

DRUGS (4)
  1. PROVERA [Suspect]
     Indication: HORMONE REPLACEMENT THERAPY
     Dosage: 5 MG, ORAL
     Route: 048
     Dates: start: 19950630, end: 19970319
  2. PREMARIN [Suspect]
     Indication: HORMONE REPLACEMENT THERAPY
     Dosage: 0.625 MG, ORAL
     Route: 048
     Dates: start: 19950630, end: 19970319
  3. PREMPRO [Suspect]
     Indication: HORMONE REPLACEMENT THERAPY
     Dosage: , ORAL
     Route: 048
     Dates: start: 19970320, end: 20000509
  4. LASIX [Concomitant]

REACTIONS (1)
  - BREAST CANCER FEMALE [None]
